FAERS Safety Report 10646402 (Version 2)
Quarter: 2014Q4

REPORT INFORMATION
  Report Type: Spontaneous
  Country: HU (occurrence: HU)
  Receive Date: 20141211
  Receipt Date: 20141230
  Transmission Date: 20150529
  Serious: Yes (Life-Threatening, Hospitalization)
  Sender: FDA-Public Use
  Company Number: HU-PFIZER INC-2014335032

PATIENT
  Age: 54 Year
  Sex: Male
  Weight: 55 kg

DRUGS (12)
  1. SUTENT [Suspect]
     Active Substance: SUNITINIB MALATE
     Indication: RENAL CELL CARCINOMA
     Dosage: 50 MG, DAILY
     Route: 048
     Dates: start: 20141017, end: 20141113
  2. MEGACE [Concomitant]
     Active Substance: MEGESTROL ACETATE
     Dosage: 1 DF, 3X/DAY
  3. TALLITON [Concomitant]
     Dosage: 6.25 MG, 2X/DAY
  4. HALOPERIDOL. [Concomitant]
     Active Substance: HALOPERIDOL
  5. NOACID [Concomitant]
     Dosage: 40 MG, 1X/DAY, IN THE EVENING
  6. FERROGRAD FOLIC [Concomitant]
     Dosage: 1 TABLET, 2X/DAY
  7. ULPRIX [Concomitant]
     Dosage: 40 MG, UNK
  8. DICLAC [Concomitant]
     Active Substance: DICLOFENAC POTASSIUM
  9. CONTRAMAL [Concomitant]
     Active Substance: TRAMADOL HYDROCHLORIDE
     Dosage: 1 TABLET, 3X/DAY
  10. MEGESIN [Concomitant]
     Dosage: 1 TABLET, 2X/DAY
  11. MEFORAL [Concomitant]
     Dosage: 1000 MG, 3X/DAY
  12. FURON [Concomitant]
     Active Substance: FUROSEMIDE
     Dosage: 0.5 TABLET, 1X/DAY

REACTIONS (2)
  - Cardiomyopathy [Recovered/Resolved]
  - Acute myocardial infarction [Recovered/Resolved]

NARRATIVE: CASE EVENT DATE: 20141201
